FAERS Safety Report 8198949-X (Version None)
Quarter: 2012Q1

REPORT INFORMATION
  Report Type: 
  Country: None (occurrence: None)
  Receive Date: 20120309
  Receipt Date: 20120224
  Transmission Date: 20120608
  Serious: No
  Sender: FDA-Public Use
  Company Number: US-AMGEN-USASP2012012531

PATIENT
  Age: 85 Year
  Sex: Female

DRUGS (6)
  1. MEVACOR [Concomitant]
  2. COZAAR [Concomitant]
  3. PROLIA [Suspect]
     Indication: OSTEOPOROSIS POSTMENOPAUSAL
     Dosage: UNK UNK, Q6MO
     Dates: start: 20120213
  4. CENTRUM                            /00554501/ [Concomitant]
  5. CARDIZEM [Concomitant]
  6. VITAMIN C                          /00008001/ [Concomitant]

REACTIONS (1)
  - GINGIVITIS [None]
